FAERS Safety Report 9236813 (Version 2)
Quarter: 2013Q2

REPORT INFORMATION
  Report Type: Spontaneous
  Country: BR (occurrence: None)
  Receive Date: 20130415
  Receipt Date: 20130507
  Transmission Date: 20140414
  Serious: Yes (Other)
  Sender: FDA-Public Use
  Company Number: DSU-2013-02812

PATIENT
  Age: 65 Year
  Sex: Male
  Weight: 78 kg

DRUGS (8)
  1. OLMETEC [Suspect]
     Indication: HYPERTENSION
     Route: 048
     Dates: start: 201302
  2. OLMETEC [Suspect]
     Indication: HYPERTENSION
     Route: 048
     Dates: start: 201302
  3. OLMETEC HCT [Suspect]
     Indication: HYPERTENSION
     Dosage: 40/25 MG QD.
  4. AAS (ACETYLSALICYLIC ACID) (ACETYLSALICYLIC ACID) [Concomitant]
  5. ATORVASTATIN (ATORVASTATIN) (ATORVASTATIN) [Concomitant]
  6. CLOPIDOGREL (CLOPIDOGREL) (CLOPIDOGREL) [Concomitant]
  7. GALVUS (VIDALGLIPTIN) (VIDALGLIPTIN) [Concomitant]
  8. PANTOPRAZOL (PANTOPRAZOLE SODIUM) (PANTOPRAZOLE SODIUM) [Concomitant]

REACTIONS (2)
  - Stent placement [None]
  - Orthostatic hypotension [None]
